FAERS Safety Report 26094965 (Version 1)
Quarter: 2025Q4

REPORT INFORMATION
  Report Type: Report from Study
  Country: CA (occurrence: CA)
  Receive Date: 20251126
  Receipt Date: 20251126
  Transmission Date: 20260117
  Serious: Yes (Hospitalization, Other)
  Sender: ABBVIE
  Company Number: CA-ABBVIE-6565109

PATIENT
  Age: 37 Year
  Sex: Female

DRUGS (1)
  1. SKYRIZI [Suspect]
     Active Substance: RISANKIZUMAB-RZAA
     Indication: Crohn^s disease
     Dosage: FORM STRENGTH 360MG/2.4ML?INJECT 360 MG SUBCUTANEOU SLY EVERY 8 WEEKS USING ON-BODY INJECTOR
     Route: 058

REACTIONS (3)
  - Abdominal operation [Unknown]
  - Small intestinal obstruction [Unknown]
  - Ileocaecal resection [Unknown]

NARRATIVE: CASE EVENT DATE: 20250101
